FAERS Safety Report 16154084 (Version 1)
Quarter: 2019Q2

REPORT INFORMATION
  Report Type: Spontaneous
  Country: ES (occurrence: ES)
  Receive Date: 20190403
  Receipt Date: 20190403
  Transmission Date: 20190711
  Serious: Yes (Hospitalization)
  Sender: FDA-Public Use
  Company Number: ES-JNJFOC-20190402696

PATIENT
  Age: 72 Year
  Sex: Male

DRUGS (7)
  1. ADIRO [Concomitant]
     Active Substance: ASPIRIN
     Indication: PROPHYLAXIS
     Dosage: 1782 DAYS START PERIOD
     Route: 048
     Dates: start: 20131011, end: 20180827
  2. IBUPROFENO (1769A) [Suspect]
     Active Substance: IBUPROFEN
     Route: 048
  3. IBUPROFENO (1769A) [Suspect]
     Active Substance: IBUPROFEN
     Indication: PYREXIA
     Dosage: START PERIOD: 9DAYS. LAST PERIOD: 1 DAY
     Route: 048
     Dates: start: 20180819, end: 20180827
  4. OMEPRAZOLE. [Concomitant]
     Active Substance: OMEPRAZOLE
     Indication: PROPHYLAXIS
     Dosage: START: 2598 DAYS.??LAST PERIOD: 1 DAYS
     Route: 048
     Dates: start: 20180718, end: 20180827
  5. FUROSEMIDE. [Concomitant]
     Active Substance: FUROSEMIDE
     Indication: HYPERTENSION
     Dosage: START PERIOD:2240 (DAYS). LAST PERIOD: 1 (DAYS)
     Route: 048
     Dates: start: 20120710, end: 20180827
  6. ATORVASTATINA [Concomitant]
     Active Substance: ATORVASTATIN
     Indication: DYSLIPIDAEMIA
     Dosage: START PERIOD:3176 (DAYS)??LAST PERIOD:1 (DAYS)
     Route: 048
     Dates: start: 20091217, end: 20180827
  7. CILOSTAZOL. [Concomitant]
     Active Substance: CILOSTAZOL
     Indication: INTERMITTENT CLAUDICATION
     Dosage: 1782 (DAYS). START PERIOD. LAST 1 DAY.
     Route: 048
     Dates: start: 20131011, end: 20180827

REACTIONS (1)
  - Acute kidney injury [Recovered/Resolved]

NARRATIVE: CASE EVENT DATE: 20180827
